FAERS Safety Report 19177617 (Version 2)
Quarter: 2021Q2

REPORT INFORMATION
  Report Type: Spontaneous
  Country: AR (occurrence: AR)
  Receive Date: 20210426
  Receipt Date: 20210508
  Transmission Date: 20210717
  Serious: Yes (Hospitalization, Other)
  Sender: FDA-Public Use
  Company Number: AR-AMGEN-ARGSP2021063149

PATIENT
  Age: 59 Year
  Sex: Female

DRUGS (1)
  1. ENBREL [Suspect]
     Active Substance: ETANERCEPT
     Indication: RHEUMATOID ARTHRITIS
     Dosage: 50 MG, EVERY 15 DAYS
     Route: 065
     Dates: start: 20170623

REACTIONS (6)
  - COVID-19 [Unknown]
  - Off label use [Unknown]
  - Dyspnoea [Unknown]
  - Arthralgia [Unknown]
  - Pneumonia [Unknown]
  - Bronchial disorder [Unknown]

NARRATIVE: CASE EVENT DATE: 20170623
